FAERS Safety Report 17893222 (Version 1)
Quarter: 2020Q2

REPORT INFORMATION
  Report Type: Spontaneous
  Country: US (occurrence: US)
  Receive Date: 20200614
  Receipt Date: 20200614
  Transmission Date: 20200714
  Serious: No
  Sender: FDA-Public Use
  Company Number: US-CELGENEUS-USA-20200602994

PATIENT
  Sex: Male

DRUGS (1)
  1. REVLIMID [Suspect]
     Active Substance: LENALIDOMIDE
     Indication: PLASMA CELL MYELOMA
     Dosage: 2.5 MILLIGRAM
     Route: 048
     Dates: start: 202002

REACTIONS (2)
  - Agitation [Unknown]
  - Insomnia [Unknown]

NARRATIVE: CASE EVENT DATE: 2020
